FAERS Safety Report 11702780 (Version 1)
Quarter: 2015Q4

REPORT INFORMATION
  Report Type: Spontaneous
  Country: US (occurrence: US)
  Receive Date: 20151105
  Receipt Date: 20151105
  Transmission Date: 20160304
  Serious: Yes (Life-Threatening, Other)
  Sender: FDA-Public Use
  Company Number: US-WATSON-2015-11830

PATIENT
  Age: 24 Year
  Sex: Male

DRUGS (1)
  1. TESTOSTERONE PROPIONATE (UNKNOWN) [Suspect]
     Active Substance: TESTOSTERONE PROPIONATE
     Indication: PRODUCT USED FOR UNKNOWN INDICATION
     Dosage: 200 MG, 1/WEEK
     Route: 065

REACTIONS (4)
  - Chronic kidney disease [Unknown]
  - Drug abuse [Unknown]
  - Hepatocellular carcinoma [Unknown]
  - Coronary artery disease [Unknown]

NARRATIVE: CASE EVENT DATE: 2013
